FAERS Safety Report 22257457 (Version 1)
Quarter: 2023Q2

REPORT INFORMATION
  Report Type: Spontaneous
  Country: JP (occurrence: JP)
  Receive Date: 20230427
  Receipt Date: 20230427
  Transmission Date: 20230722
  Serious: Yes (Hospitalization, Other)
  Sender: FDA-Public Use
  Company Number: None

PATIENT
  Age: 73 Year
  Sex: Female

DRUGS (3)
  1. DEXAMETHASONE [Suspect]
     Active Substance: DEXAMETHASONE
     Indication: Premedication
  2. PACLITAXEL [Concomitant]
     Active Substance: PACLITAXEL
     Indication: Angiosarcoma
  3. PACLITAXEL [Concomitant]
     Active Substance: PACLITAXEL
     Dosage: 6 COURSE

REACTIONS (1)
  - Septic pulmonary embolism [Recovered/Resolved]
